FAERS Safety Report 6328051-0 (Version None)
Quarter: 2009Q3

REPORT INFORMATION
  Report Type: 
  Country: None (occurrence: None)
  Receive Date: 20090825
  Receipt Date: 20081104
  Transmission Date: 20100115
  Serious: No
  Sender: FDA-Public Use
  Company Number: US-ABBOTT-08P-163-0485900-00

PATIENT
  Sex: Female
  Weight: 66.284 kg

DRUGS (3)
  1. SYNTHROID [Suspect]
     Indication: HYPOTHYROIDISM
     Route: 048
     Dates: start: 19940101
  2. ASTALIN NASAL SPRAY [Concomitant]
     Indication: SEASONAL ALLERGY
  3. ZYRTEC [Concomitant]
     Indication: SEASONAL ALLERGY

REACTIONS (2)
  - RESPIRATORY TRACT CONGESTION [None]
  - SENSATION OF FOREIGN BODY [None]
